FAERS Safety Report 6219995-9 (Version None)
Quarter: 2009Q2

REPORT INFORMATION
  Report Type: 
  Country: None (occurrence: None)
  Receive Date: 20090609
  Receipt Date: 20090528
  Transmission Date: 20091009
  Serious: Yes (Other)
  Sender: FDA-Public Use
  Company Number: CA-PFIZER INC-2009219746

PATIENT
  Age: 65 Year

DRUGS (2)
  1. CHAMPIX [Suspect]
     Indication: SMOKING CESSATION THERAPY
     Dosage: 12 WEEKS
     Dates: start: 20080101, end: 20080101
  2. CHAMPIX [Suspect]
     Dosage: 8 WEEKS, UNK
     Dates: start: 20090101, end: 20090101

REACTIONS (6)
  - AGITATION [None]
  - INSOMNIA [None]
  - LOGORRHOEA [None]
  - MOOD ALTERED [None]
  - PSYCHOMOTOR HYPERACTIVITY [None]
  - THINKING ABNORMAL [None]
